FAERS Safety Report 8589854-5 (Version None)
Quarter: 2012Q3

REPORT INFORMATION
  Report Type: 
  Country: None (occurrence: None)
  Receive Date: 20120813
  Receipt Date: 19881207
  Transmission Date: 20120928
  Serious: Yes (Hospitalization)
  Sender: FDA-Public Use
  Company Number: US-ROCHE-1098823

PATIENT
  Sex: Male

DRUGS (4)
  1. BENADRYL [Concomitant]
  2. MORPHINE SULPHATE DRIP [Concomitant]
  3. NITROGLYCERIN [Concomitant]
     Route: 060
  4. ACTIVASE [Suspect]
     Indication: PRODUCT USED FOR UNKNOWN INDICATION

REACTIONS (2)
  - BRADYCARDIA [None]
  - INSOMNIA [None]
